FAERS Safety Report 20256820 (Version 1)
Quarter: 2021Q4

REPORT INFORMATION
  Report Type: Spontaneous
  Country: US (occurrence: US)
  Receive Date: 20211230
  Receipt Date: 20211230
  Transmission Date: 20220303
  Serious: Yes (Hospitalization, Other)
  Sender: FDA-Public Use
  Company Number: US-PURDUE-USA-2020-0232523

PATIENT
  Sex: Male

DRUGS (13)
  1. OXYCONTIN [Suspect]
     Active Substance: OXYCODONE HYDROCHLORIDE
     Indication: Back injury
     Dosage: 20 MG, UNK
     Route: 048
     Dates: start: 2008
  2. OXYCONTIN [Suspect]
     Active Substance: OXYCODONE HYDROCHLORIDE
     Dosage: 40 MG, UNK
     Route: 048
     Dates: start: 2008
  3. DILAUDID [Suspect]
     Active Substance: HYDROMORPHONE HYDROCHLORIDE
     Indication: Back injury
     Dosage: UNKNOWN
     Route: 048
  4. MS CONTIN [Suspect]
     Active Substance: MORPHINE SULFATE
     Indication: Back injury
     Dosage: UNKNOWN
     Route: 048
  5. BUTRANS [Suspect]
     Active Substance: BUPRENORPHINE
     Indication: Back injury
     Dosage: UNKNOWN
     Route: 062
  6. BUPRENORPHINE [Suspect]
     Active Substance: BUPRENORPHINE
     Indication: Back injury
     Dosage: UNKNOWN
     Route: 062
  7. HYDROMORPHONE [Suspect]
     Active Substance: HYDROMORPHONE
     Indication: Back injury
     Dosage: UNKNOWN
     Route: 048
  8. MORPHINE SULFATE [Suspect]
     Active Substance: MORPHINE SULFATE
     Indication: Back injury
     Dosage: UNKNOWN
     Route: 048
  9. OXYCODONE HYDROCHLORIDE [Suspect]
     Active Substance: OXYCODONE HYDROCHLORIDE
     Indication: Back injury
     Dosage: UNKNOWN
     Route: 048
  10. ACETAMINOPHEN\OXYCODONE HYDROCHLORIDE [Suspect]
     Active Substance: ACETAMINOPHEN\OXYCODONE HYDROCHLORIDE
     Indication: Back injury
     Dosage: UNKNOWN
     Route: 048
  11. OXYCODONE HYDROCHLORIDE [Suspect]
     Active Substance: OXYCODONE HYDROCHLORIDE
     Indication: Back injury
     Dosage: 30 MG, UNK
     Route: 048
     Dates: start: 2008
  12. RYZOLT [Suspect]
     Active Substance: TRAMADOL HYDROCHLORIDE
     Indication: Back injury
     Dosage: UNKNOWN
     Route: 048
  13. OXYCODONE HYDROCHLORIDE [Suspect]
     Active Substance: OXYCODONE HYDROCHLORIDE
     Indication: Back injury
     Dosage: UNKNOWN
     Route: 048

REACTIONS (5)
  - Overdose [Unknown]
  - Drug dependence [Unknown]
  - Drug abuse [Unknown]
  - Pain [Unknown]
  - Emotional distress [Unknown]
